FAERS Safety Report 6173347-9 (Version None)
Quarter: 2009Q2

REPORT INFORMATION
  Report Type: 
  Country: None (occurrence: None)
  Receive Date: 20090430
  Receipt Date: 20090422
  Transmission Date: 20091009
  Serious: Yes (Death, Other)
  Sender: FDA-Public Use
  Company Number: US-ELI_LILLY_AND_COMPANY-US200904005056

PATIENT
  Age: 34 Year
  Sex: Male

DRUGS (4)
  1. CYMBALTA [Suspect]
     Dosage: 1 D/F, UNK
     Route: 048
  2. XANAX [Concomitant]
  3. PAROXETINE HCL [Concomitant]
  4. BUSPAR [Concomitant]

REACTIONS (3)
  - COMPLETED SUICIDE [None]
  - DEPRESSION [None]
  - HOMICIDE [None]
